FAERS Safety Report 6093293-9 (Version None)
Quarter: 2009Q1

REPORT INFORMATION
  Report Type: 
  Country: None (occurrence: None)
  Receive Date: 20090225
  Receipt Date: 20090225
  Transmission Date: 20090719
  Serious: Yes (Other)
  Sender: FDA-Public Use
  Company Number: None

PATIENT
  Sex: Female
  Weight: 61.2356 kg

DRUGS (2)
  1. HYDROCODONE BITARTRATE + ACETAMINOPHEN [Suspect]
     Indication: PAIN
     Dosage: 1 Q6H PRN /PO
     Route: 048
     Dates: start: 20040801
  2. HYDROCODONE BITARTRATE + ACETAMINOPHEN [Suspect]
     Dosage: 1 Q6H PRN /PO
     Route: 048
     Dates: start: 20040801

REACTIONS (2)
  - DRUG INEFFECTIVE [None]
  - FATIGUE [None]
